FAERS Safety Report 10005949 (Version 1)
Quarter: 2014Q1

REPORT INFORMATION
  Report Type: Spontaneous
  Country: US (occurrence: US)
  Receive Date: 20140313
  Receipt Date: 20140313
  Transmission Date: 20141002
  Serious: Yes (Hospitalization)
  Sender: FDA-Public Use
  Company Number: US-BAYER-2014-033217

PATIENT
  Age: 37 Year
  Sex: Male

DRUGS (5)
  1. KOGENATE FS [Suspect]
     Indication: HAEMOPHILIA
     Dosage: 2 DOSES (30 UNITS/KG PRIOR TO SURGERY)
     Dates: start: 20140225
  2. KOGENATE FS [Suspect]
     Indication: HAEMOPHILIA
     Dosage: 2 DOSES (30 UNITS/KG PRIOR TO SURGERY)
     Dates: start: 20140226
  3. KOGENATE FS [Suspect]
     Indication: HAEMOPHILIA
     Dosage: 1 DOSES (30 UNITS/KG AFTER SURGERY)
     Dates: start: 20140226
  4. KOGENATE FS [Suspect]
     Indication: HAEMOPHILIA
     Dosage: 1 DOSES (30 UNITS/KG)
     Dates: start: 20140227
  5. KOGENATE FS [Suspect]
     Indication: HAEMOPHILIA
     Dosage: ONE DOSE 13 UNITS/KG
     Dates: start: 20140227

REACTIONS (1)
  - Cholecystectomy [None]
